FAERS Safety Report 17927869 (Version 1)
Quarter: 2020Q2

REPORT INFORMATION
  Report Type: Spontaneous
  Country: US (occurrence: US)
  Receive Date: 20200622
  Receipt Date: 20200622
  Transmission Date: 20200714
  Serious: Yes (Hospitalization)
  Sender: FDA-Public Use
  Company Number: None

PATIENT
  Age: 59 Year
  Sex: Male
  Weight: 89.81 kg

DRUGS (1)
  1. GLATIRAMER (GLATIRAMER ACETATE 40MG/ML INJ,SYR, 1ML) [Suspect]
     Active Substance: GLATIRAMER ACETATE
     Indication: MULTIPLE SCLEROSIS
     Dates: start: 20190603, end: 20190611

REACTIONS (6)
  - Chest pain [None]
  - Dyspnoea [None]
  - Flushing [None]
  - Hypersensitivity [None]
  - Injection site urticaria [None]
  - Chest discomfort [None]

NARRATIVE: CASE EVENT DATE: 20190611
